FAERS Safety Report 6408093-7 (Version None)
Quarter: 2009Q4

REPORT INFORMATION
  Report Type: 
  Country: None (occurrence: None)
  Receive Date: 20091016
  Receipt Date: 20091006
  Transmission Date: 20100525
  Serious: Yes (Other)
  Sender: FDA-Public Use
  Company Number: 2009US000555

PATIENT
  Age: 37 Year
  Sex: Female
  Weight: 49 kg

DRUGS (10)
  1. PROGRAF [Suspect]
     Indication: PANCREAS TRANSPLANT
     Dosage: 7 MG, UID/QD, ORAL
     Route: 048
  2. PREDNISONE [Concomitant]
  3. LASIX [Concomitant]
  4. MACRODANTIN [Concomitant]
  5. PEPCID [Concomitant]
  6. ASCORBIC ACID [Concomitant]
  7. EPOGEN [Concomitant]
  8. FOLIC ACID [Concomitant]
  9. LEVOTHROID [Concomitant]
  10. IRON (FERROUS SULFATE) [Concomitant]

REACTIONS (3)
  - ABORTION SPONTANEOUS [None]
  - DRUG EXPOSURE DURING PREGNANCY [None]
  - PREGNANCY [None]
